FAERS Safety Report 8267892-X (Version None)
Quarter: 2012Q2

REPORT INFORMATION
  Report Type: 
  Country: None (occurrence: None)
  Receive Date: 20120409
  Receipt Date: 20120329
  Transmission Date: 20120825
  Serious: Yes (Hospitalization)
  Sender: FDA-Public Use
  Company Number: DE-BRISTOL-MYERS SQUIBB COMPANY-16503906

PATIENT
  Age: 70 Year

DRUGS (4)
  1. LEUCOVORIN CALCIUM [Suspect]
     Indication: COLON CANCER
     Dosage: MOST RECENT INF: 9JUL08
     Route: 042
     Dates: start: 20080513, end: 20080825
  2. CETUXIMAB [Suspect]
     Indication: COLON CANCER
     Dosage: FORM: 5MG/ML. MOST RECENT INF 15JUL2008
     Route: 042
     Dates: start: 20080513, end: 20080825
  3. OXALIPLATIN [Suspect]
     Indication: COLON CANCER
     Dosage: MOST RECENT INF: 8JUL08
     Route: 042
     Dates: start: 20080513, end: 20080825
  4. FLUOROURACIL [Suspect]
     Indication: COLON CANCER
     Dosage: MOST RECENT INF: 8JUL08
     Route: 042
     Dates: start: 20080513, end: 20080825

REACTIONS (1)
  - SYNCOPE [None]
